FAERS Safety Report 5825058-4 (Version None)
Quarter: 2008Q3

REPORT INFORMATION
  Report Type: 
  Country: None (occurrence: None)
  Receive Date: 20080729
  Receipt Date: 20080724
  Transmission Date: 20090109
  Serious: Yes (Death)
  Sender: FDA-Public Use
  Company Number: CA-BRISTOL-MYERS SQUIBB COMPANY-14279053

PATIENT

DRUGS (1)
  1. AVAPRO [Suspect]

REACTIONS (2)
  - DEATH [None]
  - MALAISE [None]
